FAERS Safety Report 4711990-1 (Version None)
Quarter: 2005Q3

REPORT INFORMATION
  Report Type: 
  Country: None (occurrence: None)
  Receive Date: 20050711
  Receipt Date: 20050711
  Transmission Date: 20060218
  Serious: Yes (Other)
  Sender: FDA-Public Use
  Company Number: None

PATIENT
  Age: 59 Year
  Sex: Female

DRUGS (1)
  1. TAXOTERE [Suspect]
     Indication: LUNG NEOPLASM MALIGNANT
     Dosage: 70 MG IV WEEKLY
     Route: 042
     Dates: start: 20050707

REACTIONS (3)
  - CHEST PAIN [None]
  - DYSPNOEA [None]
  - ERYTHEMA [None]
